FAERS Safety Report 16809134 (Version 1)
Quarter: 2019Q3

REPORT INFORMATION
  Report Type: Spontaneous
  Country: PL (occurrence: PL)
  Receive Date: 20190916
  Receipt Date: 20190916
  Transmission Date: 20191005
  Serious: Yes (Other)
  Sender: FDA-Public Use
  Company Number: PL-MYLANLABS-2019M1085373

PATIENT
  Age: 26 Year
  Sex: Female

DRUGS (16)
  1. RISPERIDONE. [Suspect]
     Active Substance: RISPERIDONE
     Indication: BIPOLAR DISORDER
  2. VALPROATE [Suspect]
     Active Substance: VALPROIC ACID
     Indication: BIPOLAR DISORDER
  3. ARIPIPRAZOLE. [Suspect]
     Active Substance: ARIPIPRAZOLE
     Indication: BIPOLAR I DISORDER
     Dosage: AT MAXIMUM DOSE OF 30 MG/DAY FOR 6 WEEKS
     Route: 065
  4. LAMOTRIGINE. [Concomitant]
     Active Substance: LAMOTRIGINE
     Indication: BIPOLAR DISORDER
  5. LAMOTRIGINE. [Concomitant]
     Active Substance: LAMOTRIGINE
     Indication: BIPOLAR I DISORDER
     Dosage: 400 MILLIGRAM, QD
     Route: 065
  6. LITHIUM CARBONATE. [Concomitant]
     Active Substance: LITHIUM CARBONATE
     Indication: BIPOLAR I DISORDER
     Dosage: 1000 MILLIGRAM, QD
     Route: 065
  7. QUETIAPINE. [Suspect]
     Active Substance: QUETIAPINE
     Indication: BIPOLAR DISORDER
  8. TOPIRAMATE. [Concomitant]
     Active Substance: TOPIRAMATE
     Indication: BIPOLAR DISORDER
  9. KETAMINE [Concomitant]
     Active Substance: KETAMINE
     Indication: BIPOLAR I DISORDER
     Dosage: EIGHT DOSES
     Route: 042
  10. QUETIAPINE. [Suspect]
     Active Substance: QUETIAPINE
     Indication: BIPOLAR I DISORDER
     Dosage: AT A MAXIMUM DOSE OF 550MG/DAY
     Route: 065
  11. RISPERIDONE. [Suspect]
     Active Substance: RISPERIDONE
     Indication: BIPOLAR I DISORDER
     Dosage: 4 MILLIGRAM
     Route: 065
  12. LITHIUM CARBONATE. [Concomitant]
     Active Substance: LITHIUM CARBONATE
     Indication: BIPOLAR DISORDER
  13. TOPIRAMATE. [Concomitant]
     Active Substance: TOPIRAMATE
     Indication: BIPOLAR I DISORDER
     Dosage: 400 MILLIGRAM
     Route: 065
  14. ARIPIPRAZOLE. [Suspect]
     Active Substance: ARIPIPRAZOLE
     Indication: BIPOLAR DISORDER
  15. VALPROATE [Suspect]
     Active Substance: VALPROIC ACID
     Indication: BIPOLAR I DISORDER
     Dosage: AT MAXIMUM DOSE OF 1300 MG/DAY FOR 9 WEEKS (SERUM LEVEL 70 MG/L)
     Route: 065
  16. KETAMINE [Concomitant]
     Active Substance: KETAMINE
     Indication: BIPOLAR DISORDER

REACTIONS (2)
  - Drug ineffective [Unknown]
  - Constipation [Unknown]
